FAERS Safety Report 25002896 (Version 4)
Quarter: 2025Q2

REPORT INFORMATION
  Report Type: Spontaneous
  Country: US (occurrence: US)
  Receive Date: 20250224
  Receipt Date: 20250519
  Transmission Date: 20250717
  Serious: No
  Sender: BIOVITRUM
  Company Number: US-BIOVITRUM-2025-US-002464

PATIENT
  Age: 78 Year
  Sex: Female

DRUGS (18)
  1. VONJO [Suspect]
     Active Substance: PACRITINIB
     Indication: Myelofibrosis
     Route: 048
     Dates: start: 20230801
  2. VONJO [Suspect]
     Active Substance: PACRITINIB
     Route: 048
     Dates: start: 20230801
  3. ANCEF [Concomitant]
     Active Substance: CEFAZOLIN SODIUM
     Indication: Product used for unknown indication
  4. ZOVIRAX [Concomitant]
     Active Substance: ACYCLOVIR
     Indication: Product used for unknown indication
  5. CONEZYME [Concomitant]
     Indication: Product used for unknown indication
  6. ASWAGANDHA ROOT EXTRACT [Concomitant]
     Indication: Product used for unknown indication
  7. ONDANSETRON [Concomitant]
     Active Substance: ONDANSETRON
     Indication: Product used for unknown indication
  8. VITAMINS [Concomitant]
     Active Substance: VITAMINS
     Indication: Product used for unknown indication
  9. ZOCOR [Concomitant]
     Active Substance: SIMVASTATIN
     Indication: Product used for unknown indication
  10. ASPIRIN [Concomitant]
     Active Substance: ASPIRIN
     Indication: Product used for unknown indication
  11. ALLOPURINOL [Concomitant]
     Active Substance: ALLOPURINOL
     Indication: Product used for unknown indication
  12. CALCIUM CITRATE [Concomitant]
     Active Substance: CALCIUM CITRATE
     Indication: Product used for unknown indication
  13. CETIRIZINE HYDROCHLORIDE [Concomitant]
     Active Substance: CETIRIZINE HYDROCHLORIDE
     Indication: Product used for unknown indication
  14. VITAMIN D3 [Concomitant]
     Active Substance: CHOLECALCIFEROL
     Indication: Product used for unknown indication
  15. FLONASE [Concomitant]
     Active Substance: FLUTICASONE PROPIONATE
     Indication: Product used for unknown indication
  16. LISINOPRIL [Concomitant]
     Active Substance: LISINOPRIL
     Indication: Product used for unknown indication
  17. OMEPRAZOLE [Concomitant]
     Active Substance: OMEPRAZOLE
     Indication: Product used for unknown indication
  18. CEFADROXIL [Concomitant]
     Active Substance: CEFADROXIL
     Indication: Product used for unknown indication

REACTIONS (5)
  - Arthritis infective [Not Recovered/Not Resolved]
  - Diarrhoea [Not Recovered/Not Resolved]
  - Product dose omission issue [Unknown]
  - Norovirus infection [Unknown]
  - Nausea [Unknown]

NARRATIVE: CASE EVENT DATE: 20250130
